FAERS Safety Report 7924279-4 (Version None)
Quarter: 2011Q4

REPORT INFORMATION
  Report Type: 
  Country: None (occurrence: None)
  Receive Date: 20111117
  Receipt Date: 20110321
  Transmission Date: 20120403
  Serious: No
  Sender: FDA-Public Use
  Company Number: US-AMGEN-USASP2011015180

PATIENT
  Sex: Female

DRUGS (1)
  1. ENBREL [Suspect]
     Indication: RHEUMATOID ARTHRITIS
     Dosage: 50 MG, QWK
     Dates: start: 20110207, end: 20110201

REACTIONS (4)
  - RHEUMATOID ARTHRITIS [None]
  - BRONCHITIS [None]
  - EAR INFECTION [None]
  - SINUSITIS [None]
